FAERS Safety Report 5383931-8 (Version None)
Quarter: 2007Q3

REPORT INFORMATION
  Report Type: 
  Country: None (occurrence: None)
  Receive Date: 20070711
  Receipt Date: 20070709
  Transmission Date: 20080115
  Serious: Yes (Disabling)
  Sender: FDA-Public Use
  Company Number: JP-BAYER-200710406BYL

PATIENT
  Age: 59 Year
  Sex: Male
  Weight: 52 kg

DRUGS (2)
  1. CIPROXAN-I.V. [Suspect]
     Indication: CHOLANGITIS ACUTE
     Dosage: TOTAL DAILY DOSE: 600 MG  UNIT DOSE: 300 MG
     Route: 042
     Dates: start: 20070602, end: 20070603
  2. CIPROXAN-I.V. [Suspect]
     Dosage: TOTAL DAILY DOSE: 300 MG  UNIT DOSE: 300 MG
     Route: 042
     Dates: start: 20070604, end: 20070604

REACTIONS (3)
  - BLOOD CREATININE INCREASED [None]
  - OLIGURIA [None]
  - RENAL FAILURE ACUTE [None]
